FAERS Safety Report 5169581-7 (Version None)
Quarter: 2006Q4

REPORT INFORMATION
  Report Type: 
  Country: None (occurrence: None)
  Receive Date: 20060918
  Receipt Date: 20051019
  Transmission Date: 20070319
  Serious: Yes (Other)
  Sender: FDA-Public Use
  Company Number: US-JNJFOC-20051004718

PATIENT
  Age: 40 Year
  Sex: Female
  Weight: 100.6985 kg

DRUGS (3)
  1. TOPAMAX [Suspect]
     Indication: CONVULSION
     Dosage: 50 MG, 1 IN 1 DAY, ORAL
     Route: 048
     Dates: start: 20050901
  2. METHADONE HCL [Concomitant]
  3. DILANTIN [Concomitant]

REACTIONS (5)
  - CONVULSION [None]
  - COORDINATION ABNORMAL [None]
  - DIZZINESS [None]
  - MALAISE [None]
  - RHINORRHOEA [None]
